FAERS Safety Report 24992290 (Version 1)
Quarter: 2025Q1

REPORT INFORMATION
  Report Type: Spontaneous
  Country: ES (occurrence: ES)
  Receive Date: 20250220
  Receipt Date: 20250220
  Transmission Date: 20250408
  Serious: Yes (Other)
  Sender: SANOFI AVENTIS
  Company Number: None

PATIENT
  Age: 81 Year
  Sex: Male

DRUGS (2)
  1. OXALIPLATIN [Interacting]
     Active Substance: OXALIPLATIN
     Indication: Colorectal adenocarcinoma
     Route: 042
     Dates: start: 20230801, end: 20240116
  2. FLUOROURACIL [Interacting]
     Active Substance: FLUOROURACIL
     Indication: Colorectal adenocarcinoma
     Route: 042
     Dates: start: 20230801, end: 20240116

REACTIONS (1)
  - Facial paralysis [Not Recovered/Not Resolved]

NARRATIVE: CASE EVENT DATE: 20231015
